FAERS Safety Report 8807063 (Version 2)
Quarter: 2014Q3

REPORT INFORMATION
  Report Type: Report from Study
  Country: US (occurrence: US)
  Receive Date: 20120925
  Receipt Date: 20140901
  Transmission Date: 20150326
  Serious: Yes (Death, Other)
  Sender: FDA-Public Use
  Company Number: US-ROCHE-1124692

PATIENT
  Sex: Female
  Weight: 40 kg

DRUGS (3)
  1. 5-FU [Concomitant]
     Active Substance: FLUOROURACIL
  2. CISPLATIN. [Concomitant]
     Active Substance: CISPLATIN
  3. AVASTIN [Suspect]
     Active Substance: BEVACIZUMAB
     Indication: NASAL CAVITY CANCER
     Route: 042

REACTIONS (3)
  - Metastases to eye [Unknown]
  - Death [Fatal]
  - Off label use [Unknown]
